FAERS Safety Report 8457261-1 (Version None)
Quarter: 2012Q2

REPORT INFORMATION
  Report Type: 
  Country: None (occurrence: None)
  Receive Date: 20120621
  Receipt Date: 20120618
  Transmission Date: 20120825
  Serious: Yes (Other)
  Sender: FDA-Public Use
  Company Number: US-ROCHE-1067839

PATIENT
  Sex: Male

DRUGS (1)
  1. NUTROPIN AQ [Suspect]
     Indication: GROWTH HORMONE DEFICIENCY
     Route: 058
     Dates: start: 20110712

REACTIONS (4)
  - DENTAL CARE [None]
  - ENAMEL ANOMALY [None]
  - STAPHYLOCOCCAL INFECTION [None]
  - LIMB OPERATION [None]
